FAERS Safety Report 10249006 (Version 1)
Quarter: 2014Q2

REPORT INFORMATION
  Report Type: Spontaneous
  Country: US (occurrence: None)
  Receive Date: 20140618
  Receipt Date: 20140618
  Transmission Date: 20141212
  Serious: No
  Sender: FDA-Public Use
  Company Number: None

PATIENT
  Age: 58 Year
  Sex: Female

DRUGS (2)
  1. SOVALDI 400MG GILEAD SCIENCES [Suspect]
     Indication: HEPATITIS C
     Route: 048
     Dates: start: 20140430
  2. SYNTHROID 100 MCG [Concomitant]

REACTIONS (5)
  - Dry eye [None]
  - Nasal dryness [None]
  - Dry mouth [None]
  - Nasal discomfort [None]
  - Ear disorder [None]
